FAERS Safety Report 5248889-0 (Version None)
Quarter: 2007Q1

REPORT INFORMATION
  Report Type: 
  Country: None (occurrence: None)
  Receive Date: 20070228
  Receipt Date: 20060407
  Transmission Date: 20070707
  Serious: No
  Sender: FDA-Public Use
  Company Number: US-GLAXOSMITHKLINE-A0600575A

PATIENT
  Age: 38 Year
  Sex: Female

DRUGS (2)
  1. VALTREX [Suspect]
     Dosage: 1G PER DAY
     Route: 048
     Dates: start: 20051201
  2. ZELNORM [Concomitant]

REACTIONS (7)
  - ARTHRALGIA [None]
  - FATIGUE [None]
  - MENORRHAGIA [None]
  - NERVOUSNESS [None]
  - OVARIAN DISORDER [None]
  - VAGINAL DISCHARGE [None]
  - WHITE BLOOD CELL COUNT DECREASED [None]
